FAERS Safety Report 21787509 (Version 2)
Quarter: 2023Q1

REPORT INFORMATION
  Report Type: Spontaneous
  Country: TR (occurrence: TR)
  Receive Date: 20221228
  Receipt Date: 20230104
  Transmission Date: 20230417
  Serious: Yes (Other)
  Sender: FDA-Public Use
  Company Number: TR-SA-SAC20221227000671

PATIENT
  Age: 13 Year
  Sex: Female

DRUGS (9)
  1. LEVOFLOXACIN [Suspect]
     Active Substance: LEVOFLOXACIN
     Indication: Tuberculosis
     Dosage: UNKNOWN
  2. RIFAMPIN [Suspect]
     Active Substance: RIFAMPIN
     Indication: Tuberculosis
     Dosage: UNKNOWN
  3. ISONIAZID [Concomitant]
     Active Substance: ISONIAZID
  4. ETHAMBUTOL [Concomitant]
     Active Substance: ETHAMBUTOL HYDROCHLORIDE
  5. STREPTOMYCIN [Concomitant]
     Active Substance: STREPTOMYCIN SULFATE
  6. CLARITHROMYCIN [Concomitant]
     Active Substance: CLARITHROMYCIN
  7. CIPROFLOXACIN [Concomitant]
     Active Substance: CIPROFLOXACIN
  8. AMIKACIN [Concomitant]
     Active Substance: AMIKACIN
  9. DOXYCYCLINE [Concomitant]
     Active Substance: DOXYCYCLINE

REACTIONS (3)
  - Disseminated mycobacterium avium complex infection [Unknown]
  - Proteinuria [Unknown]
  - Haematuria [Unknown]
